FAERS Safety Report 4498875-3 (Version None)
Quarter: 2004Q4

REPORT INFORMATION
  Report Type: 
  Country: None (occurrence: None)
  Receive Date: 20041108
  Receipt Date: 20041026
  Transmission Date: 20050328
  Serious: Yes (Hospitalization, Other)
  Sender: FDA-Public Use
  Company Number: US-JNJFOC-20040900235

PATIENT
  Age: 23 Year
  Sex: Female

DRUGS (2)
  1. EXTRA STRENGTH TYLENOL [Suspect]
     Indication: SLEEP DISORDER
     Dosage: SEE IMAGE
     Dates: start: 19950101, end: 20030801
  2. EXTRA STRENGTH TYLENOL [Suspect]
     Indication: SLEEP DISORDER
     Dosage: SEE IMAGE
     Dates: start: 20030814, end: 20030814

REACTIONS (5)
  - DRUG DEPENDENCE [None]
  - DRUG TOXICITY [None]
  - HEPATIC FAILURE [None]
  - HEPATOCELLULAR DAMAGE [None]
  - OVERDOSE [None]
